FAERS Safety Report 12367088 (Version 1)
Quarter: 2016Q2

REPORT INFORMATION
  Report Type: Spontaneous
  Country: US (occurrence: US)
  Receive Date: 20160513
  Receipt Date: 20160513
  Transmission Date: 20160815
  Serious: No
  Sender: FDA-Public Use
  Company Number: US-BAYER-2016-086811

PATIENT
  Age: 69 Year
  Sex: Female

DRUGS (1)
  1. CHILDREN CLARITIN ALLERGY [Suspect]
     Active Substance: LORATADINE
     Indication: SEASONAL ALLERGY
     Dosage: 2 DF, EVERY 24 HOURS AS NEEDED
     Route: 048
     Dates: start: 20160503

REACTIONS (5)
  - Product use issue [Recovered/Resolved]
  - Dry throat [None]
  - Product use issue [None]
  - Product use issue [None]
  - Insomnia [None]

NARRATIVE: CASE EVENT DATE: 20160503
